FAERS Safety Report 7099659-2 (Version None)
Quarter: 2010Q4

REPORT INFORMATION
  Report Type: 
  Country: None (occurrence: None)
  Receive Date: 20101112
  Receipt Date: 20101110
  Transmission Date: 20110411
  Serious: Yes (Hospitalization, Other)
  Sender: FDA-Public Use
  Company Number: JP-PFIZER INC-2010112497

PATIENT
  Age: 31 Year
  Sex: Female
  Weight: 35 kg

DRUGS (4)
  1. LYRICA [Suspect]
     Indication: DIABETES MELLITUS
     Dosage: 150 MG, 1X/DAY
     Route: 048
     Dates: start: 20100803, end: 20100825
  2. LYRICA [Suspect]
     Indication: NEUROPATHY PERIPHERAL
  3. HUMALOG [Concomitant]
     Indication: TYPE 1 DIABETES MELLITUS
     Dosage: 6 UNITS/DAY
     Route: 042
     Dates: start: 20070101
  4. LANTUS [Concomitant]
     Indication: TYPE 1 DIABETES MELLITUS
     Dosage: 12 UNITS, 1X/DAY
     Route: 042
     Dates: start: 20070101

REACTIONS (5)
  - ABDOMINAL PAIN UPPER [None]
  - BILIRUBIN CONJUGATED INCREASED [None]
  - BLOOD BILIRUBIN INCREASED [None]
  - BLOOD BILIRUBIN UNCONJUGATED INCREASED [None]
  - DEPRESSIVE SYMPTOM [None]
